FAERS Safety Report 4496220-0 (Version None)
Quarter: 2004Q4

REPORT INFORMATION
  Report Type: 
  Country: None (occurrence: None)
  Receive Date: 20041108
  Receipt Date: 20041108
  Transmission Date: 20050328
  Serious: Yes (Other)
  Sender: FDA-Public Use
  Company Number: None

PATIENT
  Age: 64 Year
  Sex: Female
  Weight: 92 kg

DRUGS (2)
  1. IRINOTECAN HCL [Suspect]
     Indication: COLON CANCER
     Dosage: 95MG Q WK X4 Q 6 WKS
     Dates: start: 20010301, end: 20010912
  2. FLUOROURACIL [Suspect]
     Indication: COLON CANCER
     Dosage: 494MG Q WK X 4 Q 6 WKS
     Dates: start: 20010301, end: 20010912

REACTIONS (1)
  - MALIGNANT MELANOMA IN SITU [None]
